FAERS Safety Report 8266281-1 (Version None)
Quarter: 2012Q2

REPORT INFORMATION
  Report Type: 
  Country: None (occurrence: None)
  Receive Date: 20120406
  Receipt Date: 20120404
  Transmission Date: 20120825
  Serious: No
  Sender: FDA-Public Use
  Company Number: US-PFIZER INC-2012085260

PATIENT
  Sex: Female
  Weight: 61.224 kg

DRUGS (5)
  1. ADVIL CONGESTION RELIEF [Suspect]
     Indication: SINUS HEADACHE
     Dosage: UNK, DAILY
     Route: 048
     Dates: start: 20120301
  2. ADVIL CONGESTION RELIEF [Suspect]
     Indication: HEADACHE
  3. ADVIL CONGESTION RELIEF [Suspect]
     Indication: SWELLING
  4. ADVIL CONGESTION RELIEF [Suspect]
     Indication: NASAL CONGESTION
  5. VICKS INH [Concomitant]
     Indication: NASAL DRYNESS
     Dosage: UNK

REACTIONS (1)
  - SOMNOLENCE [None]
